FAERS Safety Report 6136041-6 (Version None)
Quarter: 2009Q1

REPORT INFORMATION
  Report Type: 
  Country: None (occurrence: None)
  Receive Date: 20090325
  Receipt Date: 20090308
  Transmission Date: 20090719
  Serious: Yes (Other)
  Sender: FDA-Public Use
  Company Number: 2006S1004057

PATIENT
  Age: 68 Year
  Sex: Female
  Weight: 71.6683 kg

DRUGS (8)
  1. PHOSPHOSODA GINGER LEMON [Suspect]
     Indication: COLONOSCOPY
     Dosage: 90 ML;TOTAL;PO
     Route: 048
     Dates: start: 20051114, end: 20051114
  2. HYDROCHLOROTHIAZIDE [Concomitant]
  3. FENTANYL-25 [Concomitant]
  4. VERSED [Concomitant]
  5. ASPIRIN CHILDREN [Concomitant]
  6. VITAMIN D [Concomitant]
  7. CALCIUM [Concomitant]
  8. ATENOLOL [Concomitant]

REACTIONS (12)
  - ABDOMINAL DISTENSION [None]
  - ANAEMIA [None]
  - CHOLELITHIASIS [None]
  - DEHYDRATION [None]
  - DIVERTICULITIS [None]
  - DIVERTICULUM [None]
  - DYSPNOEA EXERTIONAL [None]
  - FATIGUE [None]
  - HYPERTENSION [None]
  - NAUSEA [None]
  - RENAL FAILURE ACUTE [None]
  - RENAL FAILURE CHRONIC [None]
